FAERS Safety Report 6993356-7 (Version None)
Quarter: 2010Q3

REPORT INFORMATION
  Report Type: 
  Country: None (occurrence: None)
  Receive Date: 20100917
  Receipt Date: 20100208
  Transmission Date: 20110219
  Serious: No
  Sender: FDA-Public Use
  Company Number: US-ASTRAZENECA-2009SE33203

PATIENT
  Age: 47 Year
  Sex: Female
  Weight: 72.6 kg

DRUGS (6)
  1. SEROQUEL [Suspect]
     Indication: BIPOLAR DISORDER
     Route: 048
     Dates: start: 19980101, end: 20090101
  2. SEROQUEL [Suspect]
     Indication: MANIA
     Route: 048
     Dates: start: 19980101, end: 20090101
  3. ABILIFY [Concomitant]
     Dates: start: 20080101
  4. CLOZARIL [Concomitant]
     Dates: start: 20060101
  5. NAVANE [Concomitant]
  6. STELAZINE [Concomitant]
     Dates: start: 19890101, end: 19900101

REACTIONS (5)
  - BLOOD CHOLESTEROL INCREASED [None]
  - BLOOD TRIGLYCERIDES INCREASED [None]
  - HYPERLIPIDAEMIA [None]
  - OBESITY [None]
  - TYPE 2 DIABETES MELLITUS [None]
